FAERS Safety Report 7104768-5 (Version None)
Quarter: 2010Q4

REPORT INFORMATION
  Report Type: 
  Country: None (occurrence: None)
  Receive Date: 20101109
  Receipt Date: 20101022
  Transmission Date: 20110411
  Serious: Yes (Hospitalization)
  Sender: FDA-Public Use
  Company Number: 7024195

PATIENT
  Age: 27 Year
  Sex: Female
  Weight: 58 kg

DRUGS (4)
  1. GONAL-F [Suspect]
     Indication: OVULATION INDUCTION
     Dosage: 150 IU, 1 IN 1 D, SUBCUTANEOUS, 225 IU, 1 IN 1 D, SUBCUTANEOUS
     Route: 058
     Dates: start: 20100906, end: 20100909
  2. GONAL-F [Suspect]
     Indication: OVULATION INDUCTION
     Dosage: 150 IU, 1 IN 1 D, SUBCUTANEOUS, 225 IU, 1 IN 1 D, SUBCUTANEOUS
     Route: 058
     Dates: start: 20100910, end: 20100914
  3. CEROTIDE (CETRORELIX ACETATE FOR INJECTION) (CETRORELIX ACETATE) [Concomitant]
  4. OVIDREL [Concomitant]

REACTIONS (2)
  - DRUG EXPOSURE DURING PREGNANCY [None]
  - ECTOPIC PREGNANCY [None]
